FAERS Safety Report 20110681 (Version 1)
Quarter: 2021Q4

REPORT INFORMATION
  Report Type: Spontaneous
  Country: CA (occurrence: CA)
  Receive Date: 20211124
  Receipt Date: 20211124
  Transmission Date: 20220304
  Serious: Yes (Hospitalization)
  Sender: FDA-Public Use
  Company Number: CA-TEVA-2021-CA-1979397

PATIENT
  Age: 66 Year
  Sex: Female
  Weight: 70 kg

DRUGS (2)
  1. PANTOPRAZOLE [Suspect]
     Active Substance: PANTOPRAZOLE
     Indication: Oesophagitis
     Dosage: 80 MILLIGRAM DAILY;
     Route: 048
  2. PANTOPRAZOLE [Suspect]
     Active Substance: PANTOPRAZOLE
     Indication: Gastrooesophageal reflux disease

REACTIONS (2)
  - Rash [Recovered/Resolved]
  - Skin irritation [Recovered/Resolved]
